FAERS Safety Report 4470660-8 (Version None)
Quarter: 2004Q4

REPORT INFORMATION
  Report Type: 
  Country: None (occurrence: None)
  Receive Date: 20041005
  Receipt Date: 20040922
  Transmission Date: 20050328
  Serious: Yes (Hospitalization)
  Sender: FDA-Public Use
  Company Number: 2004067025

PATIENT
  Age: 48 Year
  Sex: Female

DRUGS (3)
  1. FLUCONAZOLE [Suspect]
     Indication: ILL-DEFINED DISORDER
     Dosage: 1.4 GRAM (1.4 GRAM, 1 IN 1 D), ORAL
     Route: 048
     Dates: start: 20040305, end: 20040322
  2. TIANEPTINE (TIANEPTINE) [Concomitant]
  3. ALPRAZOLAM [Concomitant]

REACTIONS (4)
  - BLOOD CREATININE INCREASED [None]
  - HYPONATRAEMIA [None]
  - LIVER FUNCTION TEST ABNORMAL [None]
  - MEDICATION ERROR [None]
